FAERS Safety Report 9458526 (Version 1)
Quarter: 2013Q3

REPORT INFORMATION
  Report Type: Spontaneous
  Country: FR (occurrence: FR)
  Receive Date: 20130814
  Receipt Date: 20130814
  Transmission Date: 20140515
  Serious: Yes (Hospitalization)
  Sender: FDA-Public Use
  Company Number: FR-ASTRAZENECA-2013SE62259

PATIENT
  Age: 26082 Day
  Sex: Male

DRUGS (1)
  1. OMEPRAZOLE [Suspect]
     Indication: GASTRITIS
     Route: 048
     Dates: end: 20130610

REACTIONS (4)
  - Asthenia [Unknown]
  - Bronchial obstruction [Unknown]
  - Staphylococcal skin infection [Unknown]
  - Hyponatraemia [Unknown]
